FAERS Safety Report 25905422 (Version 1)
Quarter: 2025Q4

REPORT INFORMATION
  Report Type: Spontaneous
  Country: EU (occurrence: EU)
  Receive Date: 20251010
  Receipt Date: 20251010
  Transmission Date: 20260118
  Serious: Yes (Other)
  Sender: STRIDES
  Company Number: EU-STRIDES ARCOLAB LIMITED-2025SP012632

PATIENT
  Age: 16 Year
  Sex: Female

DRUGS (5)
  1. METHOTREXATE [Suspect]
     Active Substance: METHOTREXATE
     Indication: Inflammatory myofibroblastic tumour
     Dosage: 40 CYCLES
     Route: 065
  2. NAVELBINE [Suspect]
     Active Substance: VINORELBINE TARTRATE
     Indication: Inflammatory myofibroblastic tumour
     Dosage: 40 CYCLES
     Route: 065
  3. CYCLOPHOSPHAMIDE [Concomitant]
     Active Substance: CYCLOPHOSPHAMIDE
     Indication: Inflammatory myofibroblastic tumour
     Dosage: UNK
     Route: 065
     Dates: start: 2008
  4. VINCRISTINE [Concomitant]
     Active Substance: VINCRISTINE
     Indication: Inflammatory myofibroblastic tumour
     Dosage: UNK
     Route: 065
     Dates: start: 2008
  5. ACTINOMYCIN D [Concomitant]
     Active Substance: DACTINOMYCIN
     Indication: Inflammatory myofibroblastic tumour
     Dosage: UNK
     Route: 065
     Dates: start: 2008

REACTIONS (4)
  - Metastases to central nervous system [Unknown]
  - Metastases to liver [Unknown]
  - Neoplasm progression [Unknown]
  - Off label use [Unknown]

NARRATIVE: CASE EVENT DATE: 20120201
